FAERS Safety Report 4425237-7 (Version None)
Quarter: 2004Q3

REPORT INFORMATION
  Report Type: 
  Country: None (occurrence: None)
  Receive Date: 20040809
  Receipt Date: 20040727
  Transmission Date: 20050211
  Serious: Yes (Other)
  Sender: FDA-Public Use
  Company Number: 2004UW08789

PATIENT
  Age: 40 Year
  Sex: Female

DRUGS (2)
  1. SEROQUEL [Suspect]
  2. PAXIL [Concomitant]

REACTIONS (2)
  - HEPATOCELLULAR DAMAGE [None]
  - MEDICATION ERROR [None]
